FAERS Safety Report 8073192-3 (Version None)
Quarter: 2012Q1

REPORT INFORMATION
  Report Type: 
  Country: None (occurrence: None)
  Receive Date: 20120126
  Receipt Date: 20120116
  Transmission Date: 20120608
  Serious: Yes (Death)
  Sender: FDA-Public Use
  Company Number: US-ELI_LILLY_AND_COMPANY-US201111007412

PATIENT
  Sex: Female
  Weight: 38.277 kg

DRUGS (12)
  1. METOPROLOL TARTRATE [Concomitant]
  2. PLAVIX [Concomitant]
  3. COLACE [Concomitant]
  4. FORTEO [Suspect]
     Dosage: 20 UG, QD
     Route: 058
     Dates: start: 20100402
  5. LASIX [Concomitant]
  6. ASPIRIN [Concomitant]
  7. PREDNISONE TAB [Concomitant]
  8. BENAZEPRIL HYDROCHLORIDE [Concomitant]
  9. HYDROCODONE BITARTRATE AND ACETAMINOPHEN [Concomitant]
  10. NEXIUM [Concomitant]
  11. HYDRALAZINE HCL [Concomitant]
  12. CYMBALTA [Concomitant]

REACTIONS (1)
  - CEREBROVASCULAR ACCIDENT [None]
